FAERS Safety Report 7269377-6 (Version None)
Quarter: 2011Q1

REPORT INFORMATION
  Report Type: 
  Country: None (occurrence: None)
  Receive Date: 20110125
  Receipt Date: 20110110
  Transmission Date: 20110831
  Serious: Yes (Hospitalization)
  Sender: FDA-Public Use
  Company Number: 1000018273

PATIENT
  Age: 72 Year
  Sex: Female

DRUGS (10)
  1. LAMICTAL [Suspect]
  2. BUMETANIDE [Suspect]
     Indication: CARDIAC DISORDER
     Dosage: 1 MG (1 MG, 1 IN 1 D)
  3. MAREVAN (WARFARIN SODIUM) (WARFARIN SODIUM) [Concomitant]
  4. SPIRONOLACTONE [Suspect]
     Indication: CARDIAC DISORDER
     Dosage: 25 MG (25 MG, 1 IN 1 D)
  5. LAMICTAL [Concomitant]
  6. ABILIFY [Concomitant]
  7. SPIRIX (SPIRONOLACTONE) [Concomitant]
  8. ESCITALOPRAM [Suspect]
     Indication: BIPOLAR DISORDER
     Dosage: 20 MG (20 MG, 1 IN 1 D)
  9. ABILIFY [Suspect]
     Indication: BIPOLAR DISORDER
     Dosage: 10 MG (10 MG, 1 IN 1 D), 15 MG (15 MG, 1 IN 1 D)
  10. BUMETANIDE [Concomitant]

REACTIONS (4)
  - HYPONATRAEMIA [None]
  - HYPOKALAEMIA [None]
  - BLOOD OSMOLARITY DECREASED [None]
  - URINARY TRACT INFECTION [None]
